FAERS Safety Report 7783138-0 (Version None)
Quarter: 2011Q3

REPORT INFORMATION
  Report Type: 
  Country: None (occurrence: None)
  Receive Date: 20110928
  Receipt Date: 20110916
  Transmission Date: 20111222
  Serious: Yes (Other)
  Sender: FDA-Public Use
  Company Number: PHHY2011BR55317

PATIENT
  Sex: Male

DRUGS (6)
  1. HYDROCHLOROTHIAZIDE [Concomitant]
     Indication: HYPERTENSION
     Dosage: 25 MG, (ONE TABLET DAILY)
     Dates: start: 20070701
  2. AMLODIPINE [Concomitant]
     Indication: HYPERTENSION
     Dosage: 2 DF, UNK
     Dates: start: 20070701
  3. DIOVAN [Suspect]
     Indication: HYPERTENSION
     Dosage: 320 MG, (ONE TABLET DAILY)
     Dates: start: 20070701
  4. ALDOMET [Concomitant]
     Indication: HYPERTENSION
     Dosage: 4 DF, UNK
     Dates: start: 20070701
  5. ATENOLOL [Concomitant]
     Indication: HYPERTENSION
     Dosage: 2 DF, UNK
     Route: 048
     Dates: start: 20070701
  6. TICLOPIDINE HCL [Concomitant]
     Indication: HYPERTENSION
     Dosage: 2 DF, UNK
     Dates: start: 20070701

REACTIONS (2)
  - CATARACT [None]
  - NEOPLASM MALIGNANT [None]
